FAERS Safety Report 5266186-4 (Version None)
Quarter: 2007Q1

REPORT INFORMATION
  Report Type: 
  Country: None (occurrence: None)
  Receive Date: 20070315
  Receipt Date: 20070307
  Transmission Date: 20070707
  Serious: Yes (Other)
  Sender: FDA-Public Use
  Company Number: US-BAYER-200710791BWH

PATIENT
  Age: 59 Year
  Sex: Female

DRUGS (8)
  1. NEXAVAR [Suspect]
     Indication: MALIGNANT MELANOMA
     Route: 048
     Dates: start: 20060101, end: 20060501
  2. NEXAVAR [Suspect]
     Dosage: TOTAL DAILY DOSE: 400 MG  UNIT DOSE: 200 MG
     Route: 048
     Dates: start: 20060501
  3. BEVACIZUMAB [Suspect]
     Indication: MALIGNANT MELANOMA
     Dates: start: 20060101, end: 20060501
  4. TOPROL-XL [Concomitant]
  5. VALSARTAN [Concomitant]
  6. NORVASC [Concomitant]
  7. PRILOSEC [Concomitant]
  8. HYDROCHLOROTHIAZIDE [Concomitant]

REACTIONS (6)
  - BLISTER [None]
  - BLOOD PRESSURE INCREASED [None]
  - COLON NEOPLASM [None]
  - DRY SKIN [None]
  - PHOTOSENSITIVITY REACTION [None]
  - RASH [None]
